FAERS Safety Report 4619316-9 (Version None)
Quarter: 2005Q2

REPORT INFORMATION
  Report Type: 
  Country: None (occurrence: None)
  Receive Date: 20050321
  Receipt Date: 20040226
  Transmission Date: 20051028
  Serious: Yes (Hospitalization)
  Sender: FDA-Public Use
  Company Number: 2004-02-2016

PATIENT
  Age: 49 Year
  Sex: Female
  Weight: 64.4108 kg

DRUGS (8)
  1. PEG-INTRON [Suspect]
     Dosage: 120 MCG SUBCUTANEOUS
     Route: 058
  2. REBETOL [Suspect]
     Dosage: 800 MG ORAL
     Route: 048
  3. PROCRIT [Concomitant]
  4. NEUPOGEN [Concomitant]
  5. METHADONE HCL [Concomitant]
  6. PREMPRO [Concomitant]
  7. PHENERGAN [Concomitant]
  8. ACIPHEX [Concomitant]

REACTIONS (1)
  - PANCYTOPENIA [None]
